FAERS Safety Report 7298177-6 (Version None)
Quarter: 2011Q1

REPORT INFORMATION
  Report Type: 
  Country: None (occurrence: None)
  Receive Date: 20110217
  Receipt Date: 20110207
  Transmission Date: 20110831
  Serious: Yes (Life-Threatening, Hospitalization)
  Sender: FDA-Public Use
  Company Number: US-SANOFI-AVENTIS-2010SA041258

PATIENT
  Age: 63 Year
  Sex: Female

DRUGS (7)
  1. LASIX [Suspect]
     Indication: OEDEMA
     Route: 048
  2. BLINDED THERAPY [Suspect]
     Route: 065
  3. PLAVIX [Concomitant]
  4. HUMULIN 70/30 [Concomitant]
     Dates: start: 20070706
  5. LIPITOR [Concomitant]
  6. ACCUPRIL [Suspect]
     Indication: HYPERTENSION
     Route: 048
  7. GLYCERYL TRINITRATE [Concomitant]

REACTIONS (1)
  - HYPERKALAEMIA [None]
